FAERS Safety Report 25869235 (Version 1)
Quarter: 2025Q4

REPORT INFORMATION
  Report Type: Spontaneous
  Country: US (occurrence: None)
  Receive Date: 20251001
  Receipt Date: 20251001
  Transmission Date: 20260118
  Serious: Yes (Death)
  Sender: FDA-CTU
  Company Number: None

PATIENT
  Age: 71 Year
  Sex: Female

DRUGS (24)
  1. REPATHA [Suspect]
     Active Substance: EVOLOCUMAB
     Dosage: 140 MG/ML Q 2 WEEKS SUBCUTANEOUS ?
     Route: 058
     Dates: start: 20250713
  2. BISOPROLOL FUMARATE [Concomitant]
     Active Substance: BISOPROLOL FUMARATE
  3. ENTRESTO [Concomitant]
     Active Substance: SACUBITRIL\VALSARTAN
  4. FIASP FLEXTOUCH PEN [Concomitant]
  5. LIPITOR [Concomitant]
     Active Substance: ATORVASTATIN CALCIUM
  6. PLAVIX [Concomitant]
     Active Substance: CLOPIDOGREL BISULFATE
  7. ALLOPURINOL [Concomitant]
     Active Substance: ALLOPURINOL
  8. COREG [Concomitant]
     Active Substance: CARVEDILOL
  9. FAMOTIDINE [Concomitant]
     Active Substance: FAMOTIDINE
  10. KLOR-CON [Concomitant]
     Active Substance: POTASSIUM CHLORIDE
  11. LEVOTHYROXINE [Concomitant]
     Active Substance: LEVOTHYROXINE
  12. MAGNESIUM OXIDE [Concomitant]
     Active Substance: MAGNESIUM OXIDE
  13. METOLAZONE [Concomitant]
     Active Substance: METOLAZONE
  14. OZEMPIC [Concomitant]
     Active Substance: SEMAGLUTIDE
  15. PRANDIN [Concomitant]
     Active Substance: REPAGLINIDE
  16. PRESERVISION EYE VITAMINS [Concomitant]
  17. SPIRONOLACTONE [Concomitant]
     Active Substance: SPIRONOLACTONE
  18. TORSEMIDE [Concomitant]
     Active Substance: TORSEMIDE
  19. ASPIRIN 81MG EC LOW DOSE [Concomitant]
  20. ESCITALOPRAM [Concomitant]
     Active Substance: ESCITALOPRAM OXALATE
  21. EZETIMIBE [Concomitant]
     Active Substance: EZETIMIBE
  22. MAGNESIUM [Concomitant]
     Active Substance: MAGNESIUM
  23. PANTOPRAZOLE [Concomitant]
     Active Substance: PANTOPRAZOLE
  24. POTASSIUM CHLORIDE [Concomitant]
     Active Substance: POTASSIUM CHLORIDE

REACTIONS (1)
  - Death [None]

NARRATIVE: CASE EVENT DATE: 20250911
